FAERS Safety Report 19675587 (Version 3)
Quarter: 2021Q4

REPORT INFORMATION
  Report Type: Spontaneous
  Country: US (occurrence: US)
  Receive Date: 20210809
  Receipt Date: 20211001
  Transmission Date: 20220303
  Serious: Yes (Other)
  Sender: FDA-Public Use
  Company Number: US-ROCHE-2883633

PATIENT
  Age: 8 Year
  Sex: Female

DRUGS (14)
  1. XOLAIR [Suspect]
     Active Substance: OMALIZUMAB
     Indication: Asthma
     Dosage: NO
     Route: 058
     Dates: start: 202007
  2. XOLAIR [Suspect]
     Active Substance: OMALIZUMAB
  3. XOLAIR [Suspect]
     Active Substance: OMALIZUMAB
  4. XOLAIR [Suspect]
     Active Substance: OMALIZUMAB
     Dosage: YES
     Route: 058
     Dates: start: 20210727
  5. XOLAIR [Suspect]
     Active Substance: OMALIZUMAB
  6. XOLAIR [Suspect]
     Active Substance: OMALIZUMAB
  7. TOPIRAMATE [Suspect]
     Active Substance: TOPIRAMATE
     Indication: Arnold-Chiari malformation
     Route: 048
     Dates: start: 202004
  8. MONTELUKAST [Concomitant]
     Active Substance: MONTELUKAST SODIUM
     Indication: Asthma
     Dosage: GIVEN AT NIGHT
     Route: 048
     Dates: start: 202009
  9. BENADRYL [Concomitant]
     Active Substance: DIPHENHYDRAMINE HYDROCHLORIDE
  10. EPIPEN [Concomitant]
     Active Substance: EPINEPHRINE
     Dosage: ADULT DOSE
  11. LEVALBUTEROL [Concomitant]
     Active Substance: LEVALBUTEROL
  12. IPRATROPIUM BROMIDE [Concomitant]
     Active Substance: IPRATROPIUM BROMIDE
  13. ALBUTEROL SULFATE [Concomitant]
     Active Substance: ALBUTEROL SULFATE
  14. LEVOCETIRIZINE [Concomitant]
     Active Substance: LEVOCETIRIZINE
     Indication: Hypersensitivity
     Dosage: GIVE 5MG(10ML) IN THE MORNING
     Route: 048
     Dates: start: 202009

REACTIONS (6)
  - Kidney infection [Recovered/Resolved]
  - Arthralgia [Not Recovered/Not Resolved]
  - Contusion [Recovered/Resolved]
  - Rash [Unknown]
  - Pruritus [Unknown]
  - Needle issue [Unknown]

NARRATIVE: CASE EVENT DATE: 20210501
